FAERS Safety Report 22348662 (Version 4)
Quarter: 2024Q4

REPORT INFORMATION
  Report Type: Report from Study
  Country: BR (occurrence: BR)
  Receive Date: 20230522
  Receipt Date: 20241130
  Transmission Date: 20250115
  Serious: Yes (Hospitalization, Other)
  Sender: CELLTRION
  Company Number: BR-CELLTRION INC.-2023BR010569

PATIENT

DRUGS (6)
  1. INFLIXIMAB-DYYB [Suspect]
     Active Substance: INFLIXIMAB-DYYB
     Indication: Crohn^s disease
     Dosage: 240 MG EVERY 2 MONTHS
     Route: 042
     Dates: start: 20220810
  2. INFLIXIMAB-DYYB [Suspect]
     Active Substance: INFLIXIMAB-DYYB
     Dosage: 240 MG EVERY 2 MONTHS
     Route: 042
     Dates: start: 202207, end: 202208
  3. INFLIXIMAB-DYYB [Suspect]
     Active Substance: INFLIXIMAB-DYYB
     Dosage: 240 MG EVERY 2 MONTHS
     Route: 042
     Dates: start: 202207, end: 202208
  4. ADALIMUMAB [Concomitant]
     Active Substance: ADALIMUMAB
     Indication: Crohn^s disease
     Dosage: 40 MG 1 AMPOULE EVERY 14 DAYS, (STARD DATE: 6 MONTHS AGO)
     Route: 058
  5. PREDNISONE [Concomitant]
     Active Substance: PREDNISONE
     Indication: Rheumatoid arthritis
     Dosage: 1 PILL A DAY, (STARD DATE: 5 YEARS AGO)
     Route: 048
  6. METAMIZOLE SODIUM [Concomitant]
     Active Substance: METAMIZOLE SODIUM
     Indication: Rheumatoid arthritis
     Dosage: 2 PILLS A DAY, (START DATE: 7 MONTHS AGO)
     Route: 048

REACTIONS (5)
  - Intra-abdominal fluid collection [Recovered/Resolved]
  - Crohn^s disease [Unknown]
  - Infusion related reaction [Recovered/Resolved]
  - Incorrect dose administered [Unknown]
  - Underdose [Unknown]

NARRATIVE: CASE EVENT DATE: 20220810
